FAERS Safety Report 8446012-2 (Version None)
Quarter: 2012Q2

REPORT INFORMATION
  Report Type: 
  Country: None (occurrence: None)
  Receive Date: 20120323
  Receipt Date: 20111129
  Transmission Date: 20120825
  Serious: Yes (Disabling)
  Sender: FDA-Public Use
  Company Number: 163-21880-11090653

PATIENT
  Age: 52 Year
  Sex: Female

DRUGS (12)
  1. MORPHINE SULFATE INJ [Concomitant]
  2. KLOR-CON [Concomitant]
  3. RITALIN [Concomitant]
  4. ZANAFLEX [Concomitant]
  5. REVLIMID [Suspect]
     Indication: MULTIPLE MYELOMA
     Dosage: 25 MG, 1 IN 1 D, PO, 15 MG, 1 IN 1 D, PO, 10 MG, DAILY FOR 21 DAYS, PO
     Route: 048
     Dates: start: 20110830
  6. REVLIMID [Suspect]
     Indication: MULTIPLE MYELOMA
     Dosage: 25 MG, 1 IN 1 D, PO, 15 MG, 1 IN 1 D, PO, 10 MG, DAILY FOR 21 DAYS, PO
     Route: 048
     Dates: start: 20101019
  7. REVLIMID [Suspect]
     Indication: MULTIPLE MYELOMA
     Dosage: 25 MG, 1 IN 1 D, PO, 15 MG, 1 IN 1 D, PO, 10 MG, DAILY FOR 21 DAYS, PO
     Route: 048
     Dates: start: 20101101
  8. OMEPRAZOLE [Concomitant]
  9. LASIX [Concomitant]
  10. CIPRO [Concomitant]
  11. BUMETANIDE [Concomitant]
  12. ZOFRAN [Concomitant]

REACTIONS (3)
  - CELLULITIS [None]
  - FULL BLOOD COUNT DECREASED [None]
  - DIARRHOEA [None]
